FAERS Safety Report 13174518 (Version 2)
Quarter: 2017Q2

REPORT INFORMATION
  Report Type: Spontaneous
  Country: JP (occurrence: JP)
  Receive Date: 20170201
  Receipt Date: 20170517
  Transmission Date: 20170830
  Serious: Yes (Other)
  Sender: FDA-Public Use
  Company Number: JP-PFIZER INC-2017034899

PATIENT

DRUGS (2)
  1. SALAZOPYRIN [Suspect]
     Active Substance: SULFASALAZINE
     Dosage: 500 MG, 1X/DAY
     Route: 048
  2. SALAZOPYRIN [Suspect]
     Active Substance: SULFASALAZINE
     Dosage: 125 MG, 2X/DAY
     Route: 048

REACTIONS (3)
  - Hyperkalaemia [Unknown]
  - Hyponatraemia [Unknown]
  - Renal impairment [Unknown]
